FAERS Safety Report 11811860 (Version 1)
Quarter: 2015Q4

REPORT INFORMATION
  Report Type: Spontaneous
  Country: US (occurrence: US)
  Receive Date: 20151208
  Receipt Date: 20151208
  Transmission Date: 20160305
  Serious: No
  Sender: FDA-Public Use
  Company Number: US-BAYER-2015-483012

PATIENT
  Age: 43 Year
  Sex: Male
  Weight: 77.98 kg

DRUGS (4)
  1. CLARITIN REDITABS [Suspect]
     Active Substance: LORATADINE
     Indication: CONJUNCTIVITIS
     Dosage: 1 DF, QD
     Route: 048
  2. CLARITIN REDITABS [Suspect]
     Active Substance: LORATADINE
     Indication: DRY EYE
  3. CLARITIN REDITABS [Suspect]
     Active Substance: LORATADINE
     Indication: DRY MOUTH
  4. CLARITIN REDITABS [Suspect]
     Active Substance: LORATADINE
     Indication: NASAL CONGESTION

REACTIONS (2)
  - Product use issue [None]
  - Off label use [None]
